FAERS Safety Report 26209686 (Version 1)
Quarter: 2025Q4

REPORT INFORMATION
  Report Type: Spontaneous
  Country: US (occurrence: US)
  Receive Date: 20251229
  Receipt Date: 20251229
  Transmission Date: 20260118
  Serious: Yes (Hospitalization)
  Sender: ANI
  Company Number: US-ANIPHARMA-2025-US-055619

PATIENT
  Age: 89 Year
  Sex: Female

DRUGS (1)
  1. CORTICOTROPIN [Suspect]
     Active Substance: CORTICOTROPIN
     Indication: Rheumatoid arthritis
     Dosage: 80 UNITS TWO TIMES A WEEK
     Route: 058
     Dates: start: 202511

REACTIONS (4)
  - Back pain [Unknown]
  - Nausea [Unknown]
  - Abdominal distension [Unknown]
  - Blood potassium decreased [Unknown]
